FAERS Safety Report 23242191 (Version 1)
Quarter: 2023Q4

REPORT INFORMATION
  Report Type: Spontaneous
  Country: IT (occurrence: IT)
  Receive Date: 20231129
  Receipt Date: 20231129
  Transmission Date: 20240110
  Serious: Yes (Hospitalization)
  Sender: FDA-Public Use
  Company Number: IT-CHEPLA-2023014139

PATIENT
  Age: 58 Year
  Sex: Female
  Weight: 43 kg

DRUGS (18)
  1. PACLITAXEL [Suspect]
     Active Substance: PACLITAXEL
     Indication: Squamous cell carcinoma
     Dosage: 80 MILLIGRAM/SQ. METER (INTRAVENOUS INFUSION, DAYS 1, 8, AND 15)
     Route: 042
     Dates: start: 20230706, end: 20230720
  2. PACLITAXEL [Suspect]
     Active Substance: PACLITAXEL
     Dosage: 65 MILLIGRAM/SQ. METER (INTRAVENOUS INFUSION, DAYS 1, 8, AND 15)
     Route: 042
     Dates: start: 20230802, end: 20230823
  3. BUPARLISIB [Suspect]
     Active Substance: BUPARLISIB
     Indication: Squamous cell carcinoma
     Dosage: 100 MILLIGRAM, QD
     Route: 048
     Dates: start: 20230705, end: 20230822
  4. CHLORPHENIRAMINE MALEATE [Concomitant]
     Active Substance: CHLORPHENIRAMINE MALEATE
     Dosage: UNK
     Route: 065
     Dates: start: 20230706, end: 20230822
  5. SALINE [Concomitant]
     Active Substance: SODIUM CHLORIDE
     Dosage: UNK
     Route: 065
     Dates: start: 20230824, end: 20230828
  6. ACETAMINOPHEN [Concomitant]
     Active Substance: ACETAMINOPHEN
     Dosage: UNK
     Route: 065
     Dates: start: 202303, end: 20230828
  7. FENTANYL CITRATE [Concomitant]
     Active Substance: FENTANYL CITRATE
     Dosage: UNK
     Route: 065
     Dates: start: 20230616, end: 20230908
  8. LANSOPRAZOLE [Concomitant]
     Active Substance: LANSOPRAZOLE
     Dosage: UNK
     Route: 065
     Dates: start: 202111, end: 20230917
  9. DEXTROSE [Concomitant]
     Active Substance: DEXTROSE\DEXTROSE MONOHYDRATE
     Dosage: UNK
     Route: 065
     Dates: start: 20230824, end: 20230828
  10. FREAMINE III NOS [Concomitant]
     Active Substance: AMINO ACIDS
     Dosage: UNK
     Route: 065
     Dates: start: 20230824, end: 20230828
  11. ALPRAZOLAM [Concomitant]
     Active Substance: ALPRAZOLAM
     Dosage: UNK
     Route: 065
     Dates: start: 202212, end: 20230905
  12. FENTANYL [Concomitant]
     Active Substance: FENTANYL\FENTANYL CITRATE
     Dosage: UNK
     Route: 065
     Dates: start: 20230718, end: 20230917
  13. MORPHINE SULFATE [Concomitant]
     Active Substance: MORPHINE SULFATE
     Dosage: UNK
     Route: 065
     Dates: start: 20230718, end: 20230828
  14. PREDNISONE [Concomitant]
     Active Substance: PREDNISONE
     Dosage: UNK
     Route: 065
     Dates: start: 20230705, end: 20230705
  15. METHADONE [Concomitant]
     Active Substance: METHADONE HYDROCHLORIDE
     Dosage: UNK
     Route: 065
     Dates: start: 20230718
  16. GABAPENTIN [Concomitant]
     Active Substance: GABAPENTIN
     Dosage: UNK
     Route: 065
     Dates: start: 20230718, end: 20230904
  17. DEXAMETHASONE [Concomitant]
     Active Substance: DEXAMETHASONE
     Dosage: UNK
     Route: 065
     Dates: start: 20230706, end: 20230822
  18. METOCLOPRAMIDE [Concomitant]
     Active Substance: METOCLOPRAMIDE
     Dosage: UNK
     Route: 065
     Dates: start: 20230718, end: 20230828

REACTIONS (5)
  - Asthenia [Not Recovered/Not Resolved]
  - Dysuria [Unknown]
  - Diarrhoea [Unknown]
  - Haemoglobin decreased [Unknown]
  - Decreased appetite [Unknown]

NARRATIVE: CASE EVENT DATE: 20230718
